FAERS Safety Report 11046843 (Version 3)
Quarter: 2015Q4

REPORT INFORMATION
  Report Type: Spontaneous
  Country: CA (occurrence: CA)
  Receive Date: 20150420
  Receipt Date: 20151026
  Transmission Date: 20160304
  Serious: Yes (Other)
  Sender: FDA-Public Use
  Company Number: CA-ROCHE-1564515

PATIENT
  Age: 67 Year
  Sex: Male
  Weight: 80 kg

DRUGS (8)
  1. HERCEPTIN [Suspect]
     Active Substance: TRASTUZUMAB
     Indication: METASTATIC GASTRIC CANCER
     Dosage: VIALS: POWDER FOR SOLUTION INTRAVENOUS?THERAPY DURATION: 3 YEARS
     Route: 042
  2. HERCEPTIN [Suspect]
     Active Substance: TRASTUZUMAB
     Dosage: VIALS: POWDER FOR SOLUTION INTRAVENOUS?THERAPY DURATION: 3 YEARS
     Route: 042
  3. XELODA [Suspect]
     Active Substance: CAPECITABINE
     Indication: METASTATIC GASTRIC CANCER
     Dosage: THERAPY DURATION: 3 MONTHS
     Route: 048
  4. TAXOTERE [Suspect]
     Active Substance: DOCETAXEL
     Indication: METASTATIC GASTRIC CANCER
     Dosage: THERAPY DURATION: 3 MONTHS
     Route: 042
  5. FLUOROURACIL. [Concomitant]
     Active Substance: FLUOROURACIL
  6. ELOXATIN [Concomitant]
     Active Substance: OXALIPLATIN
     Route: 065
  7. IRINOTECAN [Concomitant]
     Active Substance: IRINOTECAN
     Route: 042
  8. LEUCOVORIN. [Concomitant]
     Active Substance: LEUCOVORIN

REACTIONS (8)
  - Blood glucose abnormal [Unknown]
  - Device occlusion [Unknown]
  - Cardiac ventricular disorder [Unknown]
  - Pulmonary embolism [Unknown]
  - Haemoglobin abnormal [Unknown]
  - Lymphopenia [Unknown]
  - Ejection fraction decreased [Unknown]
  - Gamma-glutamyltransferase increased [Unknown]
